FAERS Safety Report 10240602 (Version 1)
Quarter: 2014Q2

REPORT INFORMATION
  Report Type: Spontaneous
  Country: US (occurrence: None)
  Receive Date: 20140613
  Receipt Date: 20140613
  Transmission Date: 20141212
  Serious: Yes (Other)
  Sender: FDA-Public Use
  Company Number: None

PATIENT
  Age: 43 Year
  Sex: Female
  Weight: 68.04 kg

DRUGS (1)
  1. DULOXETINE 30 MG ACTAVIS [Suspect]
     Indication: NEURALGIA
     Dosage: 60 MG ONCE DAILY TAKEN BY MOUTH
     Route: 048
     Dates: start: 20120901, end: 20140606

REACTIONS (6)
  - Dizziness [None]
  - Nausea [None]
  - Musculoskeletal stiffness [None]
  - Musculoskeletal stiffness [None]
  - Drug withdrawal syndrome [None]
  - Impaired work ability [None]
